FAERS Safety Report 12242156 (Version 1)
Quarter: 2016Q2

REPORT INFORMATION
  Report Type: Spontaneous
  Country: US (occurrence: None)
  Receive Date: 20160405
  Receipt Date: 20160405
  Transmission Date: 20160815
  Serious: Yes (Other)
  Sender: FDA-Public Use
  Company Number: None

PATIENT
  Age: 60 Year
  Sex: Female

DRUGS (1)
  1. NALOXEGOL [Suspect]
     Active Substance: NALOXEGOL
     Indication: CONSTIPATION
     Route: 048
     Dates: start: 20150630, end: 20151124

REACTIONS (1)
  - Pain [None]

NARRATIVE: CASE EVENT DATE: 20151124
